FAERS Safety Report 11201850 (Version 3)
Quarter: 2015Q3

REPORT INFORMATION
  Report Type: Spontaneous
  Country: US (occurrence: None)
  Receive Date: 20150617
  Receipt Date: 20150722
  Transmission Date: 20151125
  Serious: Yes (Life-Threatening, Hospitalization, Other)
  Sender: FDA-Public Use
  Company Number: 2015AP009997

PATIENT
  Age: 18 Year
  Sex: Female
  Weight: 55 kg

DRUGS (3)
  1. DEFERIPRONE [Suspect]
     Active Substance: DEFERIPRONE
     Indication: IRON OVERLOAD
     Route: 048
     Dates: start: 20150316, end: 20150609
  2. MOTRIN [Concomitant]
     Active Substance: IBUPROFEN
  3. DEFERIPRONE [Suspect]
     Active Substance: DEFERIPRONE
     Indication: SICKLE CELL ANAEMIA
     Route: 048
     Dates: start: 20150316, end: 20150609

REACTIONS (14)
  - Carotid pulse abnormal [None]
  - Unresponsive to stimuli [None]
  - Transfusion reaction [None]
  - Maternal exposure before pregnancy [None]
  - Abortion spontaneous [None]
  - Abdominal pain [None]
  - Hypovolaemic shock [None]
  - Diarrhoea [None]
  - Haemorrhage intracranial [None]
  - Hypotension [None]
  - Syncope [None]
  - Chest pain [None]
  - Pulse absent [None]
  - Pregnancy [None]

NARRATIVE: CASE EVENT DATE: 20150610
